FAERS Safety Report 10547561 (Version 2)
Quarter: 2015Q1

REPORT INFORMATION
  Report Type: Spontaneous
  Country: FR (occurrence: FR)
  Receive Date: 20141028
  Receipt Date: 20141028
  Transmission Date: 20150720
  Serious: Yes (Other)
  Sender: FDA-Public Use
  Company Number: FR-LEO PHARMA-230341

PATIENT
  Age: 60 Year
  Sex: Male

DRUGS (1)
  1. PICATO [Suspect]
     Active Substance: INGENOL MEBUTATE
     Indication: ACTINIC KERATOSIS
     Route: 061

REACTIONS (7)
  - Drug administered at inappropriate site [Unknown]
  - Application site oedema [Unknown]
  - Application site scab [Unknown]
  - Eye pain [Unknown]
  - Application site erythema [Unknown]
  - Injury corneal [Unknown]
  - Accidental exposure to product [Unknown]
